FAERS Safety Report 20371373 (Version 3)
Quarter: 2022Q1

REPORT INFORMATION
  Report Type: Spontaneous
  Country: JP (occurrence: JP)
  Receive Date: 20220124
  Receipt Date: 20220215
  Transmission Date: 20220423
  Serious: Yes (Hospitalization, Other)
  Sender: FDA-Public Use
  Company Number: JP-DSJP-DSJ-2022-101129AA

PATIENT
  Age: 67 Year
  Sex: Female
  Weight: 50.2 kg

DRUGS (2)
  1. EDOXABAN TOSYLATE [Suspect]
     Active Substance: EDOXABAN TOSYLATE
     Indication: Cerebral infarction
     Dosage: 30 MG, QD
     Route: 048
  2. HEPARIN SODIUM [Suspect]
     Active Substance: HEPARIN SODIUM
     Indication: Cerebral infarction
     Dosage: UNK
     Route: 041

REACTIONS (3)
  - Haemorrhagic ascites [Unknown]
  - Platelet count decreased [Unknown]
  - Thrombophlebitis migrans [Unknown]
